FAERS Safety Report 8305205-5 (Version None)
Quarter: 2012Q1

REPORT INFORMATION
  Report Type: 
  Country: None (occurrence: None)
  Receive Date: 20120326
  Receipt Date: 20110214
  Transmission Date: 20120608
  Serious: Yes (Other)
  Sender: FDA-Public Use
  Company Number: PHHY2011US12544

PATIENT
  Sex: Male

DRUGS (2)
  1. LEVOTHYROXINE SODIUM [Concomitant]
  2. TASIGNA [Suspect]
     Dosage: 150 MG, BID

REACTIONS (2)
  - VISUAL ACUITY REDUCED [None]
  - ALOPECIA [None]
